FAERS Safety Report 12413153 (Version 2)
Quarter: 2016Q2

REPORT INFORMATION
  Report Type: Spontaneous
  Country: IT (occurrence: IT)
  Receive Date: 20160527
  Receipt Date: 20160623
  Transmission Date: 20160815
  Serious: Yes (Death)
  Sender: FDA-Public Use
  Company Number: IT-ROCHE-1764261

PATIENT
  Age: 76 Year
  Sex: Male

DRUGS (3)
  1. RITUXIMAB [Suspect]
     Active Substance: RITUXIMAB
     Indication: DIFFUSE LARGE B-CELL LYMPHOMA
     Dosage: 375 MG/M2, DAY 1
     Route: 042
     Dates: start: 20140314
  2. METHOTREXATE [Suspect]
     Active Substance: METHOTREXATE
     Indication: DIFFUSE LARGE B-CELL LYMPHOMA
     Dosage: 1 G/M2 ON DAY 2
     Route: 065
     Dates: start: 20140314
  3. CYTARABINE. [Suspect]
     Active Substance: CYTARABINE
     Indication: DIFFUSE LARGE B-CELL LYMPHOMA
     Dosage: 1 G TOTAL DOSE TWICE DAILY FOR DAYS 3 AND 4
     Route: 065
     Dates: start: 20140314

REACTIONS (2)
  - Multiple organ dysfunction syndrome [Fatal]
  - Campylobacter infection [Fatal]

NARRATIVE: CASE EVENT DATE: 20140321
